FAERS Safety Report 9914363 (Version 2)
Quarter: 2014Q1

REPORT INFORMATION
  Report Type: Spontaneous
  Country: LB (occurrence: LB)
  Receive Date: 20140220
  Receipt Date: 20140311
  Transmission Date: 20141002
  Serious: Yes (Hospitalization, Other)
  Sender: FDA-Public Use
  Company Number: LB-ELI_LILLY_AND_COMPANY-LB201402003583

PATIENT
  Age: 70 Year
  Sex: Female

DRUGS (1)
  1. CYMBALTA [Suspect]
     Indication: MAJOR DEPRESSION
     Dosage: 60 MG, EACH EVENING
     Route: 048
     Dates: start: 20130210, end: 20140130

REACTIONS (4)
  - Chronic obstructive pulmonary disease [Recovered/Resolved]
  - Bronchitis viral [Unknown]
  - Respiratory acidosis [Unknown]
  - Night sweats [Recovered/Resolved]
